FAERS Safety Report 11171416 (Version 1)
Quarter: 2015Q2

REPORT INFORMATION
  Report Type: Spontaneous
  Country: US (occurrence: None)
  Receive Date: 20150605
  Receipt Date: 20150605
  Transmission Date: 20150821
  Serious: Yes (Hospitalization)
  Sender: FDA-Public Use
  Company Number: None

PATIENT
  Age: 72 Year
  Sex: Male
  Weight: 83 kg

DRUGS (2)
  1. BENDAMUSTINE HYDROCHLORIDE [Suspect]
     Active Substance: BENDAMUSTINE HYDROCHLORIDE
     Dates: end: 20150409
  2. RITUXIMAB [Suspect]
     Active Substance: RITUXIMAB
     Dates: end: 20150408

REACTIONS (3)
  - Upper respiratory tract infection [None]
  - Chronic obstructive pulmonary disease [None]
  - Parainfluenzae virus infection [None]

NARRATIVE: CASE EVENT DATE: 20150510
